FAERS Safety Report 4795128-0 (Version None)
Quarter: 2005Q4

REPORT INFORMATION
  Report Type: 
  Country: None (occurrence: None)
  Receive Date: 20051006
  Receipt Date: 20050919
  Transmission Date: 20060501
  Serious: Yes (Death)
  Sender: FDA-Public Use
  Company Number: PAR_0309_2005

PATIENT
  Age: 54 Year

DRUGS (2)
  1. METOPROLOL [Suspect]
     Dosage: DF , IH
     Route: 055
  2. COCAINE [Suspect]
     Dosage: DF, IH
     Route: 055

REACTIONS (1)
  - INTENTIONAL DRUG MISUSE [None]
